FAERS Safety Report 16806222 (Version 1)
Quarter: 2019Q3

REPORT INFORMATION
  Report Type: Spontaneous
  Country: DE (occurrence: DE)
  Receive Date: 20190913
  Receipt Date: 20190913
  Transmission Date: 20191005
  Serious: Yes (Other)
  Sender: FDA-Public Use
  Company Number: DE-ASTRAZENECA-2019SF29108

PATIENT
  Sex: Male
  Weight: 2 kg

DRUGS (1)
  1. QUETIAPINE. [Suspect]
     Active Substance: QUETIAPINE
     Route: 064

REACTIONS (5)
  - Foetal exposure during pregnancy [Unknown]
  - Intensive care [Unknown]
  - Low birth weight baby [Unknown]
  - Premature baby [Unknown]
  - Respiratory distress [Unknown]
